FAERS Safety Report 19914258 (Version 2)
Quarter: 2021Q4

REPORT INFORMATION
  Report Type: Spontaneous
  Country: GB (occurrence: GB)
  Receive Date: 20211005
  Receipt Date: 20211026
  Transmission Date: 20220303
  Serious: Yes (Hospitalization)
  Sender: FDA-Public Use
  Company Number: GB-002147023-NVSC2021GB200676

PATIENT
  Age: 7 Year
  Sex: Female

DRUGS (18)
  1. VENETOCLAX [Suspect]
     Active Substance: VENETOCLAX
     Indication: Refractory cancer
     Dosage: 250 MG, QD
     Route: 048
     Dates: start: 20210716
  2. VENETOCLAX [Suspect]
     Active Substance: VENETOCLAX
     Dosage: 120 MG, QD
     Route: 048
     Dates: start: 20210715, end: 20210715
  3. TOPOTECAN HYDROCHLORIDE [Suspect]
     Active Substance: TOPOTECAN HYDROCHLORIDE
     Indication: Refractory cancer
     Dosage: 0.59 MG/M2 (UP TO 5 DAYS EACH 21 DAY CYCLE)
     Route: 042
     Dates: start: 20210715
  4. CYCLOPHOSPHAMIDE [Suspect]
     Active Substance: CYCLOPHOSPHAMIDE
     Indication: Refractory cancer
     Dosage: 196 MG/M2 (UP TO 5 DAYS EACH 21 DAY CYCLE)
     Route: 042
     Dates: start: 20210715
  5. COTRIMOXAZOLE [Concomitant]
     Active Substance: SULFAMETHOXAZOLE\TRIMETHOPRIM
     Indication: Antifungal prophylaxis
     Dosage: BID TWICE A WEEK
     Route: 048
     Dates: start: 20210715
  6. COTRIMOXAZOLE [Concomitant]
     Active Substance: SULFAMETHOXAZOLE\TRIMETHOPRIM
     Dosage: 360 MG, BID
     Route: 048
     Dates: start: 20210715
  7. DEXAMETHASONE [Concomitant]
     Active Substance: DEXAMETHASONE
     Indication: Prophylaxis of nausea and vomiting
     Dosage: 4 MG, BID
     Route: 048
     Dates: start: 20210715
  8. KETAMINE [Concomitant]
     Active Substance: KETAMINE
     Indication: Pain prophylaxis
     Dosage: 2 MG, BID
     Route: 048
     Dates: start: 20210714
  9. METOCLOPRAMIDE [Concomitant]
     Active Substance: METOCLOPRAMIDE
     Indication: Prophylaxis of nausea and vomiting
     Dosage: 2 MG, PRN
     Route: 042
     Dates: start: 20210715
  10. METOCLOPRAMIDE [Concomitant]
     Active Substance: METOCLOPRAMIDE
     Dosage: 2 MG, TID
     Route: 048
     Dates: start: 20210715
  11. MIDAZOLAM [Concomitant]
     Active Substance: MIDAZOLAM
     Indication: Agitation
     Dosage: OROMUCOSAL ROUTE
     Route: 050
  12. MIDAZOLAM [Concomitant]
     Active Substance: MIDAZOLAM
     Indication: Dyspnoea
     Dosage: 0.2 ML AS REQUIRED
     Dates: start: 20210714
  13. ONDANSETRON [Concomitant]
     Active Substance: ONDANSETRON
     Indication: Vomiting
     Dosage: 4 MG, TID(PRN)
     Route: 065
     Dates: start: 20210716
  14. OXYCONTIN [Concomitant]
     Active Substance: OXYCODONE HYDROCHLORIDE
     Indication: Pain prophylaxis
     Dosage: 20 MG (10 MG 2 IN 1 DAY), 10 MG, BID
     Route: 048
     Dates: start: 20210714
  15. ACETAMINOPHEN [Concomitant]
     Active Substance: ACETAMINOPHEN
     Indication: Pain prophylaxis
     Dosage: 195 MG, QID (PRN)
     Route: 042
     Dates: start: 20210715
  16. ACETAMINOPHEN [Concomitant]
     Active Substance: ACETAMINOPHEN
     Dosage: 295 MG, QID (PRN)
     Route: 048
     Dates: start: 20210715
  17. ACETAMINOPHEN [Concomitant]
     Active Substance: ACETAMINOPHEN
     Dosage: 340 MG, QID (PRN)
     Route: 048
     Dates: start: 20210714
  18. PREGABALIN [Concomitant]
     Active Substance: PREGABALIN
     Indication: Pain prophylaxis
     Dosage: 60 MG, BID
     Route: 048
     Dates: start: 20210701

REACTIONS (4)
  - Tachycardia [Recovered/Resolved]
  - Pyrexia [Recovered/Resolved]
  - Febrile neutropenia [Recovered/Resolved]
  - Hypotension [Recovered/Resolved]

NARRATIVE: CASE EVENT DATE: 20210821
